FAERS Safety Report 7227524-6 (Version None)
Quarter: 2011Q1

REPORT INFORMATION
  Report Type: 
  Country: None (occurrence: None)
  Receive Date: 20110114
  Receipt Date: 20100916
  Transmission Date: 20110831
  Serious: Yes (Hospitalization)
  Sender: FDA-Public Use
  Company Number: PHHY2010FI36763

PATIENT
  Sex: Male

DRUGS (2)
  1. EXELON [Suspect]
     Dosage: UNK
  2. EXELON [Suspect]
     Dosage: OVER 200 MG AT ONCE

REACTIONS (4)
  - INTENTIONAL OVERDOSE [None]
  - LOSS OF CONTROL OF LEGS [None]
  - CONFUSIONAL STATE [None]
  - DIARRHOEA [None]
